FAERS Safety Report 4466880-9 (Version None)
Quarter: 2004Q4

REPORT INFORMATION
  Report Type: 
  Country: None (occurrence: None)
  Receive Date: 20041006
  Receipt Date: 20031021
  Transmission Date: 20050328
  Serious: Yes (Hospitalization, Other)
  Sender: FDA-Public Use
  Company Number: FR-BRISTOL-MYERS SQUIBB COMPANY-12416046

PATIENT
  Age: 69 Year
  Sex: Female

DRUGS (2)
  1. TAXOL [Suspect]
     Indication: BREAST CANCER METASTATIC
     Dosage: 110 MG/M^2 ON DAY 1 1ST CYCLE: 11JUL03
     Route: 042
     Dates: start: 20030731, end: 20030731
  2. NAVELBINE [Suspect]
     Indication: BREAST CANCER METASTATIC
     Dosage: 1ST CYCLE: 11JUL03 PLANNED: 80 MG/M^2 ON DAY 1+15
     Route: 048
     Dates: start: 20030731, end: 20030731

REACTIONS (12)
  - ALOPECIA [None]
  - ANOREXIA [None]
  - ASTHENIA [None]
  - DEPRESSION [None]
  - HEADACHE [None]
  - HEPATOMEGALY [None]
  - HYPERGLYCAEMIA [None]
  - HYPOKALAEMIA [None]
  - LACRIMATION INCREASED [None]
  - LEUKOCYTOSIS [None]
  - NEUTROPENIA [None]
  - TACHYCARDIA [None]
